FAERS Safety Report 9362146 (Version 2)
Quarter: 2013Q3

REPORT INFORMATION
  Report Type: Spontaneous
  Country: JP (occurrence: JP)
  Receive Date: 20130621
  Receipt Date: 20130820
  Transmission Date: 20140515
  Serious: Yes (Hospitalization)
  Sender: FDA-Public Use
  Company Number: JP-009507513-1306JPN010319

PATIENT
  Age: 79 Year
  Sex: Female
  Weight: 54 kg

DRUGS (11)
  1. JANUVIA TABLETS 100MG [Suspect]
     Indication: DIABETES MELLITUS
     Dosage: 100 MG, QD
     Route: 048
     Dates: start: 20130525, end: 20130603
  2. JANUVIA TABLETS 50MG [Suspect]
     Indication: DIABETES MELLITUS
     Dosage: 50 MG, QD
     Route: 048
     Dates: start: 20130512, end: 20130513
  3. JANUVIA TABLETS 25MG [Suspect]
     Indication: DIABETES MELLITUS
     Dosage: 75 MG, QD
     Route: 048
     Dates: start: 20130514, end: 20130524
  4. SODIUM FERROUS CITRATE [Concomitant]
     Dosage: DAILY DOSAGE UNKNOWN, FORMULATION: POR
     Route: 048
  5. CINAL [Concomitant]
     Dosage: DAILY DOSAGE UNKNOWN, FORMULATION: POR
     Route: 048
  6. AMLODIPINE BESYLATE [Concomitant]
     Dosage: DAILY DOSE UNKNWON, FORMULATION: POR
     Route: 048
  7. ATENOLOL [Concomitant]
     Dosage: DAILY DOSAGE UNKNOWN, FORMULATION: POR
     Route: 048
  8. EBRANTIL [Concomitant]
     Dosage: DAILY DOSAGE UNKNOWN
     Route: 048
  9. ICOSAPENT ETHYL [Concomitant]
     Dosage: DAILY DOSE UNKNOWN
     Route: 048
  10. WARFARIN POTASSIUM [Concomitant]
     Dosage: DAILY DOSAGE UNKNOWN, FORMULATION: POR
     Route: 048
  11. VICCILLIN [Concomitant]
     Dosage: DAILY DOSAGE UNKNOWN, FORMULATION: XXX
     Route: 065

REACTIONS (1)
  - Lung disorder [Recovered/Resolved]
